FAERS Safety Report 23084211 (Version 4)
Quarter: 2023Q4

REPORT INFORMATION
  Report Type: Spontaneous
  Country: ES (occurrence: ES)
  Receive Date: 20231019
  Receipt Date: 20231220
  Transmission Date: 20240110
  Serious: Yes (Hospitalization, Other)
  Sender: FDA-Public Use
  Company Number: ES-ALXN-A202313494

PATIENT
  Age: 65 Year
  Sex: Male
  Weight: 55.3 kg

DRUGS (4)
  1. SOLIRIS [Suspect]
     Active Substance: ECULIZUMAB
     Indication: C3 glomerulopathy
     Dosage: 900 MG, UNK
     Route: 065
     Dates: start: 20230420, end: 20230511
  2. SOLIRIS [Suspect]
     Active Substance: ECULIZUMAB
     Indication: Off label use
     Dosage: 1200 MG, UNK
     Route: 065
     Dates: start: 20230518, end: 20230613
  3. SOLIRIS [Suspect]
     Active Substance: ECULIZUMAB
     Dosage: 900 MG, UNK
     Route: 065
     Dates: start: 20230627, end: 20230627
  4. SOLIRIS [Suspect]
     Active Substance: ECULIZUMAB
     Dosage: 1200 MG, Q2W
     Route: 065
     Dates: start: 20230711, end: 20230822

REACTIONS (6)
  - Atypical pneumonia [Unknown]
  - Immunosuppression [Unknown]
  - Plasma cell myeloma [Unknown]
  - Cytomegalovirus infection [Recovered/Resolved]
  - Aspergillus infection [Unknown]
  - Off label use [Unknown]

NARRATIVE: CASE EVENT DATE: 20230829
